FAERS Safety Report 4688681-9 (Version None)
Quarter: 2005Q2

REPORT INFORMATION
  Report Type: 
  Country: None (occurrence: None)
  Receive Date: 20050608
  Receipt Date: 20050131
  Transmission Date: 20051028
  Serious: No
  Sender: FDA-Public Use
  Company Number: 2004-BP-07168BP

PATIENT
  Age: 71 Year
  Sex: Male

DRUGS (14)
  1. SPIRIVA [Suspect]
     Indication: CHRONIC OBSTRUCTIVE PULMONARY DISEASE
     Dosage: 18 MCG (18 MCG), IH
     Route: 055
     Dates: start: 20040819
  2. SPIRIVA [Suspect]
     Indication: CHRONIC OBSTRUCTIVE PULMONARY DISEASE
     Dosage: 18 MCG (18 MCG), IH
     Route: 055
     Dates: start: 20040819
  3. ALBUTEROL [Concomitant]
  4. ACETYLSALICYLIC ACID SRT [Concomitant]
  5. CARDURA [Concomitant]
  6. DECONAMINE (DECONAMINE) [Concomitant]
  7. FOSAMAX [Concomitant]
  8. POTASSIUM ACETATE [Concomitant]
  9. NEURONTIN [Concomitant]
  10. HUMIBID (GUAIFENESIN) [Concomitant]
  11. ZOCOR [Concomitant]
  12. ADVAIR DISKUS 100/50 [Concomitant]
  13. FORADIL [Concomitant]
  14. INSULIN (INSULIN) [Concomitant]

REACTIONS (1)
  - DRUG INEFFECTIVE [None]
